FAERS Safety Report 11578959 (Version 1)
Quarter: 2015Q3

REPORT INFORMATION
  Report Type: Spontaneous
  Country: US (occurrence: US)
  Receive Date: 20150930
  Receipt Date: 20150930
  Transmission Date: 20151125
  Serious: No
  Sender: FDA-Public Use
  Company Number: ALCN2015US005881

PATIENT
  Age: 38 Year
  Sex: Female

DRUGS (2)
  1. PILOCARPINE HCL [Suspect]
     Active Substance: PILOCARPINE HYDROCHLORIDE
     Indication: HOLMES-ADIE PUPIL
     Dosage: 1 GTT, QD
     Route: 047
     Dates: start: 20150911, end: 20150915
  2. PILOCARPINE HCL [Suspect]
     Active Substance: PILOCARPINE HYDROCHLORIDE
     Dosage: 1 GTT, BID
     Route: 047
     Dates: start: 20150916

REACTIONS (2)
  - Off label use [Unknown]
  - Visual impairment [Recovered/Resolved]

NARRATIVE: CASE EVENT DATE: 201509
